FAERS Safety Report 14598864 (Version 1)
Quarter: 2018Q1

REPORT INFORMATION
  Report Type: Spontaneous
  Country: US (occurrence: US)
  Receive Date: 20180302
  Receipt Date: 20180302
  Transmission Date: 20180509
  Serious: Yes (Other)
  Sender: FDA-Public Use
  Company Number: None

PATIENT
  Age: 18 Year
  Sex: Female
  Weight: 57.7 kg

DRUGS (1)
  1. SCOPOLAMINE [Suspect]
     Active Substance: SCOPOLAMINE
     Indication: NAUSEA
     Route: 062
     Dates: start: 20180301, end: 20180301

REACTIONS (6)
  - Head titubation [None]
  - Drooling [None]
  - Irregular breathing [None]
  - Restlessness [None]
  - Dyspnoea [None]
  - Movement disorder [None]

NARRATIVE: CASE EVENT DATE: 20180301
